FAERS Safety Report 6910377-0 (Version None)
Quarter: 2010Q3

REPORT INFORMATION
  Report Type: 
  Country: None (occurrence: None)
  Receive Date: 20100806
  Receipt Date: 20100728
  Transmission Date: 20110219
  Serious: Yes (Other)
  Sender: FDA-Public Use
  Company Number: GB-ASTRAZENECA-2010SE35241

PATIENT
  Age: 70 Year
  Sex: Female

DRUGS (3)
  1. ATENOLOL [Suspect]
     Indication: HYPERTENSION
     Route: 048
     Dates: start: 20040415
  2. CANDESARTAN [Concomitant]
     Route: 048
  3. LACIDIPINE [Concomitant]

REACTIONS (20)
  - ANXIETY [None]
  - BACK PAIN [None]
  - BURNING SENSATION [None]
  - COUGH [None]
  - DRY MOUTH [None]
  - DYSGEUSIA [None]
  - EYE SWELLING [None]
  - FATIGUE [None]
  - HEADACHE [None]
  - HOT FLUSH [None]
  - JOINT SWELLING [None]
  - LOCAL SWELLING [None]
  - MALAISE [None]
  - MUSCLE SPASMS [None]
  - NAUSEA [None]
  - OEDEMA PERIPHERAL [None]
  - PANIC ATTACK [None]
  - POLYURIA [None]
  - TINNITUS [None]
  - TREMOR [None]
